FAERS Safety Report 9268822 (Version 1)
Quarter: 2013Q2

REPORT INFORMATION
  Report Type: Spontaneous
  Country: US (occurrence: US)
  Receive Date: 20130502
  Receipt Date: 20130502
  Transmission Date: 20140414
  Serious: No
  Sender: FDA-Public Use
  Company Number: US-009507513-1304USA017807

PATIENT
  Sex: Female
  Weight: 64.85 kg

DRUGS (2)
  1. IMPLANON [Suspect]
     Indication: CONTRACEPTION
     Dosage: 1 DF, UNK
     Route: 059
     Dates: start: 201104
  2. VITAMINS (UNSPECIFIED) [Concomitant]
     Dosage: UNK

REACTIONS (4)
  - Menstrual disorder [Unknown]
  - Menstruation delayed [Unknown]
  - Polymenorrhoea [Unknown]
  - Dysmenorrhoea [Unknown]
